FAERS Safety Report 16972067 (Version 1)
Quarter: 2019Q4

REPORT INFORMATION
  Report Type: Spontaneous
  Country: IT (occurrence: IT)
  Receive Date: 20191029
  Receipt Date: 20191029
  Transmission Date: 20200122
  Serious: Yes (Other)
  Sender: FDA-Public Use
  Company Number: IT-ALLERGAN-1943273US

PATIENT
  Sex: Male

DRUGS (3)
  1. SIDERAL [Concomitant]
  2. MODURETIC 5-50 [Concomitant]
     Active Substance: AMILORIDE HYDROCHLORIDE\HYDROCHLOROTHIAZIDE
  3. CONSTELLA [Suspect]
     Active Substance: LINACLOTIDE
     Indication: IRRITABLE BOWEL SYNDROME
     Dosage: UNK
     Route: 048

REACTIONS (4)
  - Inappropriate schedule of product administration [Unknown]
  - Bladder papilloma [Unknown]
  - Anaemia [Unknown]
  - Drug ineffective [Unknown]
